FAERS Safety Report 10173018 (Version 1)
Quarter: 2014Q2

REPORT INFORMATION
  Report Type: Spontaneous
  Country: US (occurrence: None)
  Receive Date: 20140514
  Receipt Date: 20140514
  Transmission Date: 20141212
  Serious: Yes (Death)
  Sender: FDA-Public Use
  Company Number: None

PATIENT
  Sex: Female

DRUGS (3)
  1. TORISEL [Suspect]
  2. SUTENT [Suspect]
  3. INLYTA [Suspect]

REACTIONS (4)
  - Blister [None]
  - Heat oedema [None]
  - Pulmonary oedema [None]
  - Vomiting [None]
